FAERS Safety Report 15209441 (Version 1)
Quarter: 2018Q3

REPORT INFORMATION
  Report Type: Spontaneous
  Country: US (occurrence: US)
  Receive Date: 20180727
  Receipt Date: 20180727
  Transmission Date: 20181010
  Serious: Yes (Life-Threatening, Hospitalization)
  Sender: FDA-Public Use
  Company Number: US-MYLANLABS-2018M1056106

PATIENT
  Age: 75 Year
  Sex: Male

DRUGS (2)
  1. CYTARABINE. [Suspect]
     Active Substance: CYTARABINE
     Indication: ACUTE MYELOID LEUKAEMIA
     Dosage: (7 + 3 INDUCTION THERAPY)
     Route: 065
  2. IDARUBICIN [Suspect]
     Active Substance: IDARUBICIN
     Indication: ACUTE MYELOID LEUKAEMIA
     Dosage: (7 + 3 INDUCTION THERAPY)
     Route: 065

REACTIONS (6)
  - Sinusitis fungal [Recovering/Resolving]
  - Epistaxis [Unknown]
  - Anaemia [Not Recovered/Not Resolved]
  - Fusarium infection [Recovering/Resolving]
  - Pneumonia [Unknown]
  - Febrile neutropenia [Not Recovered/Not Resolved]
